FAERS Safety Report 25790031 (Version 1)
Quarter: 2025Q3

REPORT INFORMATION
  Report Type: Spontaneous
  Country: EU (occurrence: EU)
  Receive Date: 20250911
  Receipt Date: 20250911
  Transmission Date: 20251020
  Serious: Yes (Hospitalization)
  Sender: MSN LABORATORIES PRIVATE LIMITED
  Company Number: EU-MSNLABS-2023MSNLIT01974

PATIENT

DRUGS (23)
  1. PREGABALIN [Suspect]
     Active Substance: PREGABALIN
     Indication: Pain
     Dosage: 2 X 75 MG
     Route: 048
  2. PREGABALIN [Suspect]
     Active Substance: PREGABALIN
     Indication: Arthralgia
  3. PREGABALIN [Suspect]
     Active Substance: PREGABALIN
     Indication: Insomnia
  4. DAPAGLIFLOZIN [Suspect]
     Active Substance: DAPAGLIFLOZIN
     Indication: Type 2 diabetes mellitus
     Dosage: 10 MG, PER DAY
     Route: 065
  5. METAMIZOLE [Suspect]
     Active Substance: METAMIZOLE
     Indication: Pain
     Dosage: 1000 MG, 3X PER DAY
     Route: 048
  6. METAMIZOLE [Suspect]
     Active Substance: METAMIZOLE
     Indication: Arthralgia
  7. DEXKETOPROFEN [Suspect]
     Active Substance: DEXKETOPROFEN
     Indication: Pain
     Dosage: 50 MG, 3X PER DAY
     Route: 048
  8. DEXKETOPROFEN [Suspect]
     Active Substance: DEXKETOPROFEN
     Indication: Arthralgia
  9. OXYCODONE [Suspect]
     Active Substance: OXYCODONE
     Indication: Pain
     Dosage: 20 MILLIGRAM, DAILY (TITRATED DOSE)
     Route: 042
  10. OXYCODONE [Suspect]
     Active Substance: OXYCODONE
     Indication: Arthralgia
  11. ACETAMINOPHEN\TRAMADOL [Suspect]
     Active Substance: ACETAMINOPHEN\TRAMADOL
     Indication: General anaesthesia
     Dosage: 3 TIMES DAILY (TRAMADOL WITH PARACETAMOL 75/650 MG)
     Route: 065
  12. ACETAMINOPHEN\TRAMADOL [Suspect]
     Active Substance: ACETAMINOPHEN\TRAMADOL
     Dosage: 3 TIMES DAILY (TRAMADOL WITH PARACETAMOL 75/650 MG)
     Route: 065
  13. CIPROFLOXACIN [Suspect]
     Active Substance: CIPROFLOXACIN
     Indication: Urinary tract infection
     Dosage: 500 MILLIGRAM, BID
     Route: 048
  14. CIPROFLOXACIN [Suspect]
     Active Substance: CIPROFLOXACIN
     Indication: Type 2 diabetes mellitus
  15. METFORMIN [Suspect]
     Active Substance: METFORMIN HYDROCHLORIDE
     Indication: Type 2 diabetes mellitus
     Dosage: 1000 MILLIGRAM, QID
     Route: 048
  16. METFORMIN [Suspect]
     Active Substance: METFORMIN HYDROCHLORIDE
     Dosage: 1000 MG, PER DAY
     Route: 065
  17. MIRTAZAPINE [Suspect]
     Active Substance: MIRTAZAPINE
     Indication: Insomnia
     Dosage: 15 MG,AT NIGHT
     Route: 065
  18. MIRTAZAPINE [Suspect]
     Active Substance: MIRTAZAPINE
     Indication: Depression
  19. OMEPRAZOLE [Suspect]
     Active Substance: OMEPRAZOLE
     Indication: Gastrooesophageal reflux disease
     Dosage: 15 MILLIGRAM
     Route: 065
  20. OMEPRAZOLE [Suspect]
     Active Substance: OMEPRAZOLE
     Indication: Gastrooesophageal reflux disease
     Dosage: 40 MG, PER DAY
     Route: 048
  21. SERTRALINE [Concomitant]
     Active Substance: SERTRALINE HYDROCHLORIDE
     Dosage: 50 MG IN THE MORNING
     Route: 048
  22. SERTRALINE [Concomitant]
     Active Substance: SERTRALINE HYDROCHLORIDE
     Indication: Insomnia
  23. PANTOPRAZOLE [Concomitant]
     Active Substance: PANTOPRAZOLE
     Route: 065

REACTIONS (4)
  - Labelled drug-drug interaction issue [Unknown]
  - Arthralgia [Recovered/Resolved]
  - Sedation [Recovered/Resolved]
  - Overdose [Recovered/Resolved]
